FAERS Safety Report 8818005 (Version 2)
Quarter: 2013Q1

REPORT INFORMATION
  Report Type: Report from Study
  Country: DE (occurrence: DE)
  Receive Date: 20121002
  Receipt Date: 20130130
  Transmission Date: 20140127
  Serious: Yes (Hospitalization, Other)
  Sender: FDA-Public Use
  Company Number: DE-SANOFI-AVENTIS-2012SA072140

PATIENT
  Sex: Male
  Weight: 149 kg

DRUGS (10)
  1. MULTAQ [Suspect]
     Indication: ATRIAL FIBRILLATION
     Route: 048
     Dates: start: 20120625
  2. BETA BLOCKING AGENTS [Concomitant]
     Dates: start: 201204
  3. VIT K ANTAGONISTS [Concomitant]
  4. METFORMIN HYDROCHLORIDE/SITAGLIPTIN PHOSPHATE [Concomitant]
  5. RAMIPRIL [Concomitant]
  6. AMLODIPINE [Concomitant]
  7. HYGROTON [Concomitant]
  8. DOXAZOSIN [Concomitant]
  9. NITRO-SPRAY [Concomitant]
  10. TORASEMIDE [Concomitant]
     Dates: end: 20120625

REACTIONS (2)
  - Atrial fibrillation [Unknown]
  - Dyspnoea [Unknown]
